FAERS Safety Report 7140199 (Version 21)
Quarter: 2012Q4

REPORT INFORMATION
  Report Type: 
  Country: CA (occurrence: CA)
  Receive Date: 20091006
  Receipt Date: 20121109
  Transmission Date: 20130627
  Serious: Yes (Other)
  Sender: FDA-Public Use
  Company Number: PHHY2009CA16887

PATIENT
  Sex: Female

DRUGS (7)
  1. SANDOSTATIN LAR [Suspect]
     Indication: METASTATIC CARCINOID TUMOUR
     Dosage: 30 mg, every 3 weeks
     Route: 030
     Dates: start: 20060119
  2. SANDOSTATIN LAR [Suspect]
     Dosage: 30 mg, BIW
     Route: 030
     Dates: start: 20070206
  3. SANDOSTATIN LAR [Suspect]
     Dosage: 40 mg, once in 21 days
  4. SANDOSTATIN LAR [Suspect]
     Dosage: 30 mg, UNK
  5. SANDOSTATIN LAR [Suspect]
     Dosage: 30 mg, every 3 weeks
     Route: 030
     Dates: start: 20110222
  6. AFINITOR [Suspect]
     Indication: METASTATIC CARCINOID TUMOUR
     Dosage: 10mg every day
     Route: 048
     Dates: start: 20110415, end: 20110531
  7. ANTIHYPERTENSIVES [Concomitant]

REACTIONS (21)
  - Central nervous system lesion [Unknown]
  - Depression [Recovering/Resolving]
  - Oral candidiasis [Unknown]
  - Groin pain [Unknown]
  - Increased upper airway secretion [Unknown]
  - Cough [Unknown]
  - Pain in extremity [Unknown]
  - Oedema peripheral [Unknown]
  - Flank pain [Unknown]
  - Blister [Recovering/Resolving]
  - Blood pressure systolic increased [Unknown]
  - Injection site swelling [Unknown]
  - Injection site pain [Unknown]
  - Influenza like illness [Recovering/Resolving]
  - Fatigue [Unknown]
  - Abdominal pain [Recovered/Resolved]
  - Pruritus [Recovering/Resolving]
  - Rash [Not Recovered/Not Resolved]
  - Abdominal distension [Recovering/Resolving]
  - Flatulence [Unknown]
  - Nausea [Unknown]
